FAERS Safety Report 6057830-2 (Version None)
Quarter: 2009Q1

REPORT INFORMATION
  Report Type: 
  Country: None (occurrence: None)
  Receive Date: 20090129
  Receipt Date: 20090127
  Transmission Date: 20090719
  Serious: Yes (Other)
  Sender: FDA-Public Use
  Company Number: US-KINGPHARMUSA00001-K200900086

PATIENT
  Age: 49 Year
  Sex: Female

DRUGS (2)
  1. CORGARD [Suspect]
     Indication: ARRHYTHMIA
     Dosage: 40 MG, QD, UNK
  2. AMIODARONE HCL [Concomitant]
     Dosage: 200 MG, QD

REACTIONS (3)
  - ACTIVITIES OF DAILY LIVING IMPAIRED [None]
  - GENERAL PHYSICAL HEALTH DETERIORATION [None]
  - WITHDRAWAL ARRHYTHMIA [None]
